FAERS Safety Report 5148070-X (Version None)
Quarter: 2006Q4

REPORT INFORMATION
  Report Type: 
  Country: None (occurrence: None)
  Receive Date: 20061110
  Receipt Date: 20061103
  Transmission Date: 20070319
  Serious: Yes (Other)
  Sender: FDA-Public Use
  Company Number: ES-BAYER-200615568GDS

PATIENT
  Age: 90 Year
  Sex: Female

DRUGS (2)
  1. ACTIRA [Suspect]
     Indication: BRONCHITIS
     Dosage: TOTAL DAILY DOSE: 400 MG  UNIT DOSE: 400 MG
     Route: 048
     Dates: start: 20061001, end: 20061001
  2. AZITHROMYCIN [Concomitant]
     Indication: BRONCHITIS
     Dosage: TOTAL DAILY DOSE: 500 MG  UNIT DOSE: 500 MG
     Route: 048
     Dates: start: 20061001, end: 20061001

REACTIONS (3)
  - DEMENTIA [None]
  - NERVOUSNESS [None]
  - PARANOIA [None]
